FAERS Safety Report 10364489 (Version 4)
Quarter: 2015Q2

REPORT INFORMATION
  Report Type: Report from Study
  Country: US (occurrence: US)
  Receive Date: 20140806
  Receipt Date: 20150515
  Transmission Date: 20150821
  Serious: Yes (Hospitalization, Other)
  Sender: FDA-Public Use
  Company Number: US-ASTRAZENECA-2014SE17322

PATIENT
  Age: 71 Year
  Sex: Male
  Weight: 101.2 kg

DRUGS (17)
  1. CRESTOR [Suspect]
     Active Substance: ROSUVASTATIN CALCIUM
     Indication: BLOOD CHOLESTEROL INCREASED
     Route: 048
     Dates: start: 2012
  2. UNSPECIFIED GENERIC [Suspect]
     Active Substance: UNSPECIFIED INGREDIENT
     Route: 065
  3. TRAVATAN Z [Concomitant]
     Active Substance: TRAVOPROST
     Indication: GLAUCOMA
     Dosage: 1 DROP DAILY
     Route: 050
     Dates: start: 2012
  4. AFGAN [Concomitant]
     Indication: GLAUCOMA
     Dosage: 1 DROP BID
     Route: 048
     Dates: start: 201311
  5. AMIODARONE [Concomitant]
     Active Substance: AMIODARONE
     Indication: VENTRICULAR TACHYCARDIA
     Route: 048
     Dates: start: 1997
  6. CRESTOR [Suspect]
     Active Substance: ROSUVASTATIN CALCIUM
     Indication: CARDIAC DISORDER
     Route: 048
     Dates: start: 2012
  7. CRESTOR [Suspect]
     Active Substance: ROSUVASTATIN CALCIUM
     Indication: CARDIAC DISORDER
     Route: 048
     Dates: start: 201308, end: 201405
  8. TIMOLOL [Concomitant]
     Active Substance: TIMOLOL
     Indication: GLAUCOMA
     Dates: end: 201310
  9. LISINOPRIL. [Suspect]
     Active Substance: LISINOPRIL
     Indication: CARDIAC DISORDER
     Dosage: 5MG OR 10MG DAILY
     Route: 048
     Dates: start: 20131027, end: 201405
  10. BREODININE [Concomitant]
     Indication: GLAUCOMA
     Dosage: DAILY
  11. COUMADIN [Concomitant]
     Active Substance: WARFARIN SODIUM
     Indication: IMPLANTABLE DEFIBRILLATOR INSERTION
     Dosage: DAILY
     Dates: start: 201308
  12. CRESTOR [Suspect]
     Active Substance: ROSUVASTATIN CALCIUM
     Indication: BLOOD CHOLESTEROL INCREASED
     Route: 048
     Dates: start: 201308, end: 201405
  13. OXYCODONE [Suspect]
     Active Substance: OXYCODONE
     Route: 065
  14. CRESTOR [Suspect]
     Active Substance: ROSUVASTATIN CALCIUM
     Indication: BLOOD CHOLESTEROL INCREASED
     Route: 048
     Dates: start: 201303, end: 201404
  15. METOPROLOL SUCCINATE EXTENDED-RELEASE [Suspect]
     Active Substance: METOPROLOL SUCCINATE
     Indication: CARDIAC FAILURE
     Route: 048
     Dates: start: 20131027, end: 201311
  16. CRESTOR [Suspect]
     Active Substance: ROSUVASTATIN CALCIUM
     Indication: CARDIAC DISORDER
     Route: 048
     Dates: start: 201303, end: 201404
  17. LOSARTAN [Concomitant]
     Active Substance: LOSARTAN
     Indication: CARDIAC DISORDER
     Route: 048
     Dates: start: 201405

REACTIONS (31)
  - Depression [Unknown]
  - Pain [Recovering/Resolving]
  - Cardiac failure congestive [Recovering/Resolving]
  - Ejection fraction abnormal [Recovering/Resolving]
  - Prostatic disorder [Recovered/Resolved]
  - Spinal column stenosis [Not Recovered/Not Resolved]
  - Lipids increased [Recovering/Resolving]
  - Back disorder [Recovering/Resolving]
  - Pulmonary embolism [Recovered/Resolved]
  - Blood cholesterol increased [Recovered/Resolved]
  - Asthenia [Recovered/Resolved]
  - Cough [Not Recovered/Not Resolved]
  - Gait disturbance [Recovered/Resolved]
  - Dyspnoea [Recovered/Resolved]
  - Back pain [Unknown]
  - Hypokinesia [Recovered/Resolved]
  - Medical device discomfort [Recovered/Resolved]
  - Hypotension [Recovered/Resolved]
  - Atrial fibrillation [Unknown]
  - Infection [Not Recovered/Not Resolved]
  - Pain in extremity [Recovering/Resolving]
  - Drug dose omission [Not Recovered/Not Resolved]
  - Atrial flutter [Recovered/Resolved]
  - Heart rate decreased [Recovered/Resolved]
  - Dizziness [Recovered/Resolved]
  - Drug ineffective [Unknown]
  - Chest pain [Recovered/Resolved]
  - Insomnia [Not Recovered/Not Resolved]
  - Discomfort [Not Recovered/Not Resolved]
  - Muscular weakness [Unknown]
  - Intentional product misuse [Recovered/Resolved]

NARRATIVE: CASE EVENT DATE: 2013
